FAERS Safety Report 8903100 (Version 1)
Quarter: 2012Q4

REPORT INFORMATION
  Report Type: 
  Country: US (occurrence: US)
  Receive Date: 20121112
  Receipt Date: 20121112
  Transmission Date: 20130627
  Serious: Yes (Other)
  Sender: FDA-Public Use
  Company Number: US-ELI_LILLY_AND_COMPANY-US201211000968

PATIENT
  Age: 56 Year
  Sex: Female

DRUGS (1)
  1. CYMBALTA [Suspect]
     Indication: BACK PAIN
     Dosage: 60 mg, UNK
     Dates: start: 201205

REACTIONS (11)
  - Atelectasis [Unknown]
  - Hepatomegaly [Unknown]
  - Hepatic steatosis [Unknown]
  - Abdominal mass [Unknown]
  - Epiploic appendagitis [Unknown]
  - Adrenal disorder [Unknown]
  - Somnolence [Recovered/Resolved]
  - Feeling abnormal [Recovered/Resolved]
  - Abdominal pain upper [Unknown]
  - Constipation [Unknown]
  - Blood pressure increased [Unknown]
